FAERS Safety Report 6471744-5 (Version None)
Quarter: 2009Q4

REPORT INFORMATION
  Report Type: 
  Country: None (occurrence: None)
  Receive Date: 20091203
  Receipt Date: 20090601
  Transmission Date: 20100525
  Serious: Yes (Hospitalization)
  Sender: FDA-Public Use
  Company Number: US-ELI_LILLY_AND_COMPANY-US200803002720

PATIENT
  Sex: Male
  Weight: 99.773 kg

DRUGS (29)
  1. BYETTA [Suspect]
     Indication: TYPE 2 DIABETES MELLITUS
     Dosage: 5 UG, 2/D
     Route: 058
     Dates: start: 20050101
  2. BYETTA [Suspect]
     Dosage: 10 UG, UNK
     Dates: end: 20060401
  3. BYETTA [Suspect]
     Dosage: 5 UG, 2/D
     Dates: start: 20061001, end: 20070101
  4. BYETTA [Suspect]
     Dosage: 10 UG, 2/D
     Route: 058
     Dates: start: 20070101, end: 20071223
  5. NOVOLIN 70/30 [Concomitant]
     Indication: DIABETES MELLITUS
     Dosage: 20 U, 2/D
     Route: 058
  6. METFORMIN HCL [Concomitant]
     Indication: DIABETES MELLITUS
  7. METOPROLOL [Concomitant]
     Indication: DIABETES MELLITUS
     Dosage: 100 MG, 2/D
     Route: 048
     Dates: start: 20071001
  8. ADVIL LIQUI-GELS [Concomitant]
     Indication: PAIN
     Dosage: UNK, AS NEEDED
  9. TYLENOL /USA/ [Concomitant]
     Indication: PAIN
     Dosage: UNK, AS NEEDED
  10. AMBIEN [Concomitant]
  11. AGGRENOX [Concomitant]
  12. IMDUR [Concomitant]
  13. NEURONTIN [Concomitant]
  14. LYRICA [Concomitant]
  15. AMITRIPTYLINE [Concomitant]
  16. LANTUS [Concomitant]
  17. LOVASTATIN [Concomitant]
  18. LISINOPRIL [Concomitant]
  19. TEMAZEPAM [Concomitant]
  20. LASIX [Concomitant]
  21. POTASSIUM [Concomitant]
  22. PROTONIX [Concomitant]
  23. NIASPAN [Concomitant]
  24. ZOCOR [Concomitant]
  25. OXYCODONE HCL AND ACETAMINOPHEN [Concomitant]
  26. LOTREL [Concomitant]
  27. TRICOR [Concomitant]
  28. ATENOLOL [Concomitant]
  29. TRILEPTAL [Concomitant]

REACTIONS (14)
  - ABDOMINAL DISTENSION [None]
  - ABDOMINAL PAIN UPPER [None]
  - AORTIC VALVE INCOMPETENCE [None]
  - BALANCE DISORDER [None]
  - CHEST PAIN [None]
  - DECREASED APPETITE [None]
  - DIARRHOEA [None]
  - HYPERGAMMAGLOBULINAEMIA BENIGN MONOCLONAL [None]
  - NAUSEA [None]
  - OEDEMA PERIPHERAL [None]
  - PANCREATITIS [None]
  - RENAL IMPAIRMENT [None]
  - VOMITING [None]
  - WEIGHT DECREASED [None]
